FAERS Safety Report 6321685-9 (Version None)
Quarter: 2009Q3

REPORT INFORMATION
  Report Type: 
  Country: None (occurrence: None)
  Receive Date: 20090821
  Receipt Date: 20090821
  Transmission Date: 20100115
  Serious: Yes (Life-Threatening, Hospitalization, Disabling, Other)
  Sender: FDA-Public Use
  Company Number: None

PATIENT
  Age: 11 Year
  Sex: Male
  Weight: 72.5755 kg

DRUGS (1)
  1. DILANTIN [Suspect]
     Dosage: 100 MG CAPSUAL 3 TIMES A DAY
     Dates: start: 19950924, end: 19950929

REACTIONS (9)
  - BLINDNESS [None]
  - BONE DISORDER [None]
  - LOSS OF CONSCIOUSNESS [None]
  - LUNG DISORDER [None]
  - ONYCHOMADESIS [None]
  - PHOTOSENSITIVITY REACTION [None]
  - SCAR [None]
  - THERMAL BURN [None]
  - TRICHIASIS [None]
